FAERS Safety Report 19861597 (Version 8)
Quarter: 2025Q1

REPORT INFORMATION
  Report Type: Spontaneous
  Country: US (occurrence: US)
  Receive Date: 20210920
  Receipt Date: 20250212
  Transmission Date: 20250408
  Serious: Yes (Other)
  Sender: PFIZER
  Company Number: US-PFIZER INC-202101220175

PATIENT
  Age: 82 Year
  Sex: Female

DRUGS (1)
  1. XELJANZ XR [Suspect]
     Active Substance: TOFACITINIB CITRATE
     Indication: Rheumatoid arthritis
     Dosage: 11 MG, 1X/DAY (11MG, ONE TAB DAILY)
     Route: 048

REACTIONS (9)
  - Limb operation [Unknown]
  - Toe operation [Unknown]
  - Hypoacusis [Unknown]
  - Memory impairment [Unknown]
  - Gait disturbance [Not Recovered/Not Resolved]
  - Gait inability [Recovering/Resolving]
  - Pain in extremity [Unknown]
  - Synovitis [Recovering/Resolving]
  - Arthritis [Unknown]
